FAERS Safety Report 23495675 (Version 2)
Quarter: 2024Q1

REPORT INFORMATION
  Report Type: Report from Study
  Country: PR (occurrence: PR)
  Receive Date: 20240207
  Receipt Date: 20240306
  Transmission Date: 20240409
  Serious: Yes (Death, Hospitalization, Other)
  Sender: FDA-Public Use
  Company Number: PR-PFIZER INC-202300358265

PATIENT
  Age: 83 Year
  Sex: Female

DRUGS (4)
  1. IBRANCE [Suspect]
     Active Substance: PALBOCICLIB
     Dosage: DAILY FOR 21 DAYS REST 7 DAYS, EVERY 28 DAYS
     Route: 048
     Dates: start: 20230515
  2. IBRANCE [Suspect]
     Active Substance: PALBOCICLIB
     Dosage: DAILY FOR 21 DAYS, REST 7 DAYS
     Route: 048
     Dates: start: 20230515
  3. IBRANCE [Suspect]
     Active Substance: PALBOCICLIB
     Dosage: (75 MG TABLET FOR 21 DAYS)
     Dates: start: 20230215
  4. FULVESTRANT +PHARMA [Concomitant]
     Dosage: UNK

REACTIONS (6)
  - Death [Fatal]
  - Incoherent [Not Recovered/Not Resolved]
  - Balance disorder [Unknown]
  - Decreased appetite [Unknown]
  - Central nervous system lesion [Unknown]
  - Diarrhoea [Not Recovered/Not Resolved]

NARRATIVE: CASE EVENT DATE: 20231106
